FAERS Safety Report 5621296-4 (Version None)
Quarter: 2008Q1

REPORT INFORMATION
  Report Type: 
  Country: None (occurrence: None)
  Receive Date: 20080211
  Receipt Date: 20080131
  Transmission Date: 20080703
  Serious: Yes (Other)
  Sender: FDA-Public Use
  Company Number: FR-SP-E2008-00109

PATIENT
  Age: 23 Year
  Sex: Female
  Weight: 63 kg

DRUGS (2)
  1. TUBERTEST [Suspect]
     Indication: TUBERCULIN TEST
     Route: 023
     Dates: start: 20080108
  2. AMOXICILLIN [Concomitant]
     Route: 048
     Dates: start: 20080103

REACTIONS (6)
  - ANGIOEDEMA [None]
  - HYPERSENSITIVITY [None]
  - INJECTION SITE REACTION [None]
  - PRURITUS GENERALISED [None]
  - RESPIRATORY DISORDER [None]
  - URTICARIA [None]
